FAERS Safety Report 21426085 (Version 1)
Quarter: 2022Q4

REPORT INFORMATION
  Report Type: Other
  Country: CA (occurrence: None)
  Receive Date: 20221008
  Receipt Date: 20221008
  Transmission Date: 20230113
  Serious: Yes (Other)
  Sender: FDA-Public Use
  Company Number: CA-ROCHE-3193190

PATIENT
  Age: 34 Year
  Sex: Female

DRUGS (2)
  1. OCREVUS [Suspect]
     Active Substance: OCRELIZUMAB
     Indication: Relapsing-remitting multiple sclerosis
     Dosage: THEN 600 MG EVERY 6 MONTHS
     Route: 042
     Dates: start: 20210416
  2. LYRICA [Concomitant]
     Active Substance: PREGABALIN

REACTIONS (5)
  - Fatigue [Recovered/Resolved]
  - Headache [Recovered/Resolved]
  - Asthenia [Recovered/Resolved]
  - Depression [Recovered/Resolved]
  - Suicidal ideation [Unknown]

NARRATIVE: CASE EVENT DATE: 20220422
